FAERS Safety Report 21494325 (Version 6)
Quarter: 2023Q1

REPORT INFORMATION
  Report Type: Spontaneous
  Country: CA (occurrence: CA)
  Receive Date: 20221021
  Receipt Date: 20230225
  Transmission Date: 20230418
  Serious: Yes (Death, Hospitalization, Disabling, Other)
  Sender: FDA-Public Use
  Company Number: CA-NOVARTISPH-NVSC2022CA233204

PATIENT
  Age: 80 Year
  Sex: Male
  Weight: 69 kg

DRUGS (378)
  1. PROPYLENE GLYCOL [Suspect]
     Active Substance: PROPYLENE GLYCOL
     Indication: Product used for unknown indication
     Dosage: UNK
     Route: 065
  2. POLYETHYLENE GLYCOL [Suspect]
     Active Substance: POLYETHYLENE GLYCOL
     Indication: Product used for unknown indication
     Dosage: UNK
     Route: 047
  3. CEFTRIAXONE [Suspect]
     Active Substance: CEFTRIAXONE
     Indication: Bacterial infection
     Dosage: 2 G, QD
     Route: 042
  4. CEFTRIAXONE [Suspect]
     Active Substance: CEFTRIAXONE
     Indication: Off label use
  5. ASCORBIC ACID [Suspect]
     Active Substance: ASCORBIC ACID
     Indication: Vitamin supplementation
     Dosage: 17 G, QD
     Route: 048
  6. ASCORBIC ACID [Suspect]
     Active Substance: ASCORBIC ACID
     Indication: Constipation
     Dosage: 17 G, QD
     Route: 048
  7. AMIODARONE [Suspect]
     Active Substance: AMIODARONE
     Indication: Drug therapy
     Dosage: UNK, QD
     Route: 042
  8. AMIODARONE [Suspect]
     Active Substance: AMIODARONE
     Indication: Ventricular fibrillation
     Dosage: 150 MG, QD
     Route: 042
  9. AMIODARONE [Suspect]
     Active Substance: AMIODARONE
     Indication: Off label use
     Dosage: 150 MG, QD
     Route: 042
  10. CEFTRIAXONE SODIUM [Suspect]
     Active Substance: CEFTRIAXONE SODIUM
     Indication: Bacterial infection
     Dosage: 2 G, QD
     Route: 042
  11. ACETAMINOPHEN [Suspect]
     Active Substance: ACETAMINOPHEN
     Indication: Analgesic therapy
     Dosage: 650 MG, QD
     Route: 048
  12. ACETAMINOPHEN [Suspect]
     Active Substance: ACETAMINOPHEN
     Indication: Off label use
     Dosage: 650 MG, QD
     Route: 048
  13. ACETAMINOPHEN [Suspect]
     Active Substance: ACETAMINOPHEN
     Dosage: 5 MG
     Route: 042
  14. ACETAMINOPHEN [Suspect]
     Active Substance: ACETAMINOPHEN
     Dosage: 650 MG, QD
     Route: 048
  15. ACETAMINOPHEN [Suspect]
     Active Substance: ACETAMINOPHEN
     Dosage: UNK
     Route: 065
  16. HORSE CHESTNUT [Suspect]
     Active Substance: HORSE CHESTNUT
     Indication: Constipation
     Dosage: 17 G, QD
     Route: 048
  17. HORSE CHESTNUT [Suspect]
     Active Substance: HORSE CHESTNUT
     Indication: Off label use
  18. ALBUTEROL SULFATE [Suspect]
     Active Substance: ALBUTEROL SULFATE
     Indication: Chronic obstructive pulmonary disease
     Dosage: 4.0 DOSAGE FORM, QD
  19. ALBUTEROL SULFATE [Suspect]
     Active Substance: ALBUTEROL SULFATE
     Dosage: 1.0 DOSAGE FORM, Q6H
  20. ALBUTEROL SULFATE [Suspect]
     Active Substance: ALBUTEROL SULFATE
     Dosage: UNK, QD
     Route: 065
  21. ALBUTEROL SULFATE [Suspect]
     Active Substance: ALBUTEROL SULFATE
     Dosage: 4.0 DOSAGE FORM, QD
  22. POLYETHYLENE GLYCOL 4000 [Suspect]
     Active Substance: POLYETHYLENE GLYCOL 4000
     Indication: Constipation
     Dosage: 17.0 MG, QD
     Route: 048
  23. POLYETHYLENE GLYCOL 4000 [Suspect]
     Active Substance: POLYETHYLENE GLYCOL 4000
     Dosage: 17 MG
     Route: 048
  24. SIMVASTATIN [Suspect]
     Active Substance: SIMVASTATIN
     Indication: Vitamin supplementation
     Dosage: UNK
     Route: 065
  25. SIMVASTATIN [Suspect]
     Active Substance: SIMVASTATIN
     Indication: Off label use
     Dosage: 40.0 MG, QD
     Route: 048
  26. SIMVASTATIN [Suspect]
     Active Substance: SIMVASTATIN
     Indication: Blood cholesterol increased
  27. SODIUM CITRATE [Suspect]
     Active Substance: SODIUM CITRATE
     Indication: Thrombosis
     Dosage: 2.5 MG, QD (SOLUTION)
     Route: 065
  28. SODIUM CITRATE [Suspect]
     Active Substance: SODIUM CITRATE
     Dosage: 2.5 ML
     Route: 065
  29. SODIUM CITRATE [Suspect]
     Active Substance: SODIUM CITRATE
     Dosage: 2.5 ML, PRN
     Route: 065
  30. SODIUM CITRATE [Suspect]
     Active Substance: SODIUM CITRATE
     Dosage: 2.5 ML, PRN
     Route: 065
  31. ACETAMINOPHEN [Suspect]
     Active Substance: ACETAMINOPHEN
     Indication: Off label use
     Dosage: 650 MG, QD
     Route: 048
  32. ACETAMINOPHEN [Suspect]
     Active Substance: ACETAMINOPHEN
     Indication: Analgesic therapy
     Dosage: 5.0 MG, QD
     Route: 042
  33. ACETAMINOPHEN [Suspect]
     Active Substance: ACETAMINOPHEN
     Dosage: 650 MG, QD
     Route: 048
  34. ACETAMINOPHEN [Suspect]
     Active Substance: ACETAMINOPHEN
     Dosage: 650 MG, QD
     Route: 048
  35. ACETAMINOPHEN [Suspect]
     Active Substance: ACETAMINOPHEN
     Dosage: UNK
     Route: 048
  36. ATROVENT [Suspect]
     Active Substance: IPRATROPIUM BROMIDE
     Indication: Sleep disorder therapy
     Dosage: 1.8 DOSAGE FORM, Q8H
     Route: 065
  37. ATROVENT [Suspect]
     Active Substance: IPRATROPIUM BROMIDE
     Indication: Off label use
     Dosage: 4.0 DOSAGE FORM
  38. ATROVENT [Suspect]
     Active Substance: IPRATROPIUM BROMIDE
     Indication: Dyspnoea
     Dosage: UNK, QD
     Route: 065
  39. ATROVENT [Suspect]
     Active Substance: IPRATROPIUM BROMIDE
     Dosage: UNK, Q6H
     Route: 065
  40. ATROVENT [Suspect]
     Active Substance: IPRATROPIUM BROMIDE
     Dosage: 1.0 DOSAGE FORM, Q6H
     Route: 065
  41. ATROVENT [Suspect]
     Active Substance: IPRATROPIUM BROMIDE
     Dosage: UNK, QID (4 EVERY 1 DAYS)
  42. ATROVENT [Suspect]
     Active Substance: IPRATROPIUM BROMIDE
     Dosage: UNK, QD
  43. ATROVENT [Suspect]
     Active Substance: IPRATROPIUM BROMIDE
     Dosage: UNK, QID (4 EVERY 1 DAYS)
  44. ATROVENT [Suspect]
     Active Substance: IPRATROPIUM BROMIDE
     Dosage: UNK
     Route: 065
  45. ATROVENT [Suspect]
     Active Substance: IPRATROPIUM BROMIDE
     Dosage: UNK, QD
     Route: 065
  46. ATROVENT [Suspect]
     Active Substance: IPRATROPIUM BROMIDE
     Dosage: UNK, Q6H
     Route: 065
  47. ATROVENT [Suspect]
     Active Substance: IPRATROPIUM BROMIDE
     Dosage: UNK, QD
     Route: 065
  48. ATROVENT [Suspect]
     Active Substance: IPRATROPIUM BROMIDE
     Dosage: UNK, QID (4 EVERY 1 DAYS)
     Route: 065
  49. ATROVENT [Suspect]
     Active Substance: IPRATROPIUM BROMIDE
     Dosage: 1.0 DOSAGE FORM, Q6H
     Route: 065
  50. ATROVENT [Suspect]
     Active Substance: IPRATROPIUM BROMIDE
     Dosage: UNK, QID (4 EVERY 1 DAYS)
  51. ATROVENT [Suspect]
     Active Substance: IPRATROPIUM BROMIDE
     Dosage: UNK, Q8H
     Route: 065
  52. ATROVENT [Suspect]
     Active Substance: IPRATROPIUM BROMIDE
     Dosage: UNK, Q6H
  53. ATROVENT [Suspect]
     Active Substance: IPRATROPIUM BROMIDE
     Dosage: 1.0 DOSAGE FORM (1 EVERY 4 DAYS)
     Route: 065
  54. ATROVENT [Suspect]
     Active Substance: IPRATROPIUM BROMIDE
     Dosage: 1.0 DOSAGE FORM, QD
     Route: 065
  55. ALLOPURINOL [Suspect]
     Active Substance: ALLOPURINOL
     Indication: Blood uric acid increased
     Dosage: 100.0 MG, QD
     Route: 048
  56. ALLOPURINOL [Suspect]
     Active Substance: ALLOPURINOL
     Indication: Off label use
     Dosage: 1 DOSAGE FORM
     Route: 048
  57. AMINOBENZOIC ACID [Suspect]
     Active Substance: AMINOBENZOIC ACID
     Indication: Product used for unknown indication
     Dosage: 12.5 MG
     Route: 065
  58. LANSOPRAZOLE [Suspect]
     Active Substance: LANSOPRAZOLE
     Indication: Off label use
     Dosage: 30 MG
     Route: 065
  59. LANSOPRAZOLE [Suspect]
     Active Substance: LANSOPRAZOLE
     Indication: Intentional product misuse
     Dosage: 30.0 MG, QD
     Route: 048
  60. LANSOPRAZOLE [Suspect]
     Active Substance: LANSOPRAZOLE
     Indication: Antacid therapy
  61. AMMONIUM CHLORIDE\CHLORPHENIRAMINE MALEATE [Suspect]
     Active Substance: AMMONIUM CHLORIDE\CHLORPHENIRAMINE MALEATE
     Indication: Thrombosis
     Dosage: 2.5 ML, QD
     Route: 048
  62. AMMONIUM CHLORIDE\CHLORPHENIRAMINE MALEATE [Suspect]
     Active Substance: AMMONIUM CHLORIDE\CHLORPHENIRAMINE MALEATE
     Dosage: 2.5 ML, PRN
     Route: 048
  63. ANTICOAGULANT SODIUM CITRATE [Suspect]
     Active Substance: SODIUM CITRATE
     Indication: Thrombosis
     Dosage: 2.5 MG, QD
     Route: 065
  64. ANTICOAGULANT SODIUM CITRATE [Suspect]
     Active Substance: SODIUM CITRATE
     Dosage: 2.5 MG, PRN
     Route: 065
  65. ARANESP [Suspect]
     Active Substance: DARBEPOETIN ALFA
     Indication: Anaemia
     Dosage: 10 MG, Q2W
     Route: 042
  66. ARANESP [Suspect]
     Active Substance: DARBEPOETIN ALFA
     Dosage: 0.71 UG, QW
     Route: 042
  67. ARANESP [Suspect]
     Active Substance: DARBEPOETIN ALFA
     Dosage: 20 ML, QW
     Route: 042
  68. ARANESP [Suspect]
     Active Substance: DARBEPOETIN ALFA
     Dosage: 10 MG
     Route: 042
  69. ARANESP [Suspect]
     Active Substance: DARBEPOETIN ALFA
     Dosage: 1.42 UG, QW
     Route: 042
  70. ARANESP [Suspect]
     Active Substance: DARBEPOETIN ALFA
     Dosage: 10 UG, Q2W
     Route: 042
  71. ARANESP [Suspect]
     Active Substance: DARBEPOETIN ALFA
     Dosage: 10 MG, CYCLIC
     Route: 042
  72. ARANESP [Suspect]
     Active Substance: DARBEPOETIN ALFA
     Dosage: 10 MG
     Route: 042
  73. ARANESP [Suspect]
     Active Substance: DARBEPOETIN ALFA
     Dosage: 0.71 UG
     Route: 065
  74. ARANESP [Suspect]
     Active Substance: DARBEPOETIN ALFA
     Dosage: UNK
     Route: 042
  75. ARANESP [Suspect]
     Active Substance: DARBEPOETIN ALFA
     Dosage: 0.2 UG
     Route: 042
  76. ARANESP [Suspect]
     Active Substance: DARBEPOETIN ALFA
     Dosage: 10 UG, CYCLIC
     Route: 042
  77. ARANESP [Suspect]
     Active Substance: DARBEPOETIN ALFA
     Dosage: UNK
     Route: 017
  78. ARANESP [Suspect]
     Active Substance: DARBEPOETIN ALFA
     Dosage: 10 MG
     Route: 042
  79. ARANESP [Suspect]
     Active Substance: DARBEPOETIN ALFA
     Dosage: 0.71 UG
     Route: 065
  80. ARANESP [Suspect]
     Active Substance: DARBEPOETIN ALFA
     Dosage: 20 MG
     Route: 042
  81. ARANESP [Suspect]
     Active Substance: DARBEPOETIN ALFA
     Dosage: 20 UG
     Route: 042
  82. BETA CAROTENE [Suspect]
     Active Substance: BETA CAROTENE
     Indication: Nutritional supplementation
     Dosage: UNK
     Route: 065
  83. BETA CAROTENE [Suspect]
     Active Substance: BETA CAROTENE
     Dosage: 12.5 IU, PRN
     Route: 042
  84. BETAMETHASONE [Suspect]
     Active Substance: BETAMETHASONE
     Indication: Swelling
     Dosage: 1.0 DOSAGE FORM
     Route: 061
  85. BETAMETHASONE [Suspect]
     Active Substance: BETAMETHASONE
     Indication: Off label use
     Dosage: 1.0 DOSAGE FORM
     Route: 065
  86. BETAMETHASONE [Suspect]
     Active Substance: BETAMETHASONE
     Dosage: 10 MG
     Route: 061
  87. BETAMETHASONE [Suspect]
     Active Substance: BETAMETHASONE
     Dosage: 1.0 DOSAGE FORM
     Route: 065
  88. BETAMETHASONE [Suspect]
     Active Substance: BETAMETHASONE
     Dosage: UNK, PRN
     Route: 061
  89. BETAMETHASONE [Suspect]
     Active Substance: BETAMETHASONE
     Dosage: UNK, QD
     Route: 061
  90. BETAMETHASONE [Suspect]
     Active Substance: BETAMETHASONE
     Dosage: UNK
     Route: 065
  91. BETAMETHASONE [Suspect]
     Active Substance: BETAMETHASONE
     Dosage: UNK
     Route: 065
  92. BETAMETHASONE [Suspect]
     Active Substance: BETAMETHASONE
     Dosage: UNK
     Route: 065
  93. BETAMETHASONE DIPROPIONATE [Suspect]
     Active Substance: BETAMETHASONE DIPROPIONATE
     Indication: Swelling
     Dosage: UNK, QD
     Route: 061
  94. BETAMETHASONE DIPROPIONATE [Suspect]
     Active Substance: BETAMETHASONE DIPROPIONATE
     Dosage: UNK, QD
     Route: 061
  95. BISACODYL [Suspect]
     Active Substance: BISACODYL
     Indication: Ventricular fibrillation
     Dosage: 10 MG, PRN
     Route: 065
  96. BISACODYL [Suspect]
     Active Substance: BISACODYL
     Indication: Dyspnoea
     Dosage: 10 MG, PRN
     Route: 042
  97. BISACODYL [Suspect]
     Active Substance: BISACODYL
     Indication: Constipation
     Dosage: 10 MG, QD
     Route: 054
  98. BISACODYL [Suspect]
     Active Substance: BISACODYL
     Indication: Drug therapy
     Dosage: 10 MG, PRN
     Route: 054
  99. BISACODYL [Suspect]
     Active Substance: BISACODYL
     Indication: Off label use
     Dosage: UNK
     Route: 065
  100. BISMUTH [Suspect]
     Active Substance: BISMUTH
     Indication: Constipation
     Dosage: 133 ML, PRN
     Route: 054
  101. BREO ELLIPTA [Suspect]
     Active Substance: FLUTICASONE FUROATE\VILANTEROL TRIFENATATE
     Indication: Nutritional supplementation
     Dosage: 1.0 IU, QD
  102. BREO ELLIPTA [Suspect]
     Active Substance: FLUTICASONE FUROATE\VILANTEROL TRIFENATATE
     Dosage: UNK
     Route: 065
  103. UNSPECIFIED INGREDIENT [Suspect]
     Active Substance: UNSPECIFIED INGREDIENT
     Indication: Dyspnoea
     Dosage: 1.0 IU/KG
     Route: 065
  104. LIDOCAINE [Suspect]
     Active Substance: LIDOCAINE
     Indication: Constipation
     Dosage: 133 ML
     Route: 054
  105. CALCITRIOL [Suspect]
     Active Substance: CALCITRIOL
     Indication: Vitamin D abnormal
     Dosage: 0.25 UG, QD
     Route: 048
  106. CALCITRIOL [Suspect]
     Active Substance: CALCITRIOL
     Indication: Hypovitaminosis
     Dosage: 500 MG, Q8H
     Route: 048
  107. CALCIUM\VITAMIN D [Suspect]
     Active Substance: CALCIUM\VITAMIN D
     Indication: Product used for unknown indication
     Dosage: UNK
     Route: 065
  108. CHLORAMPHENICOL [Suspect]
     Active Substance: CHLORAMPHENICOL
     Indication: Product used for unknown indication
     Dosage: UNK
     Route: 065
  109. CHLORAMPHENICOL\HYDROCORTISONE ACETATE\METRONIDAZOLE\NYSTATIN [Suspect]
     Active Substance: CHLORAMPHENICOL\HYDROCORTISONE ACETATE\METRONIDAZOLE\NYSTATIN
     Indication: Bacterial infection
     Dosage: 1500 MG
     Route: 065
  110. CHLORAMPHENICOL\HYDROCORTISONE ACETATE\METRONIDAZOLE\NYSTATIN [Suspect]
     Active Substance: CHLORAMPHENICOL\HYDROCORTISONE ACETATE\METRONIDAZOLE\NYSTATIN
     Indication: Anaemia
     Dosage: 1500 MG, Q8H
     Route: 065
  111. COUMADIN [Suspect]
     Active Substance: WARFARIN SODIUM
     Indication: Thrombosis
     Dosage: 2 G, QD
     Route: 048
  112. COUMADIN [Suspect]
     Active Substance: WARFARIN SODIUM
     Dosage: 2 ML, QD
     Route: 048
  113. COUMADIN [Suspect]
     Active Substance: WARFARIN SODIUM
     Dosage: 2 MG, QD
     Route: 048
  114. DEXILANT [Suspect]
     Active Substance: DEXLANSOPRAZOLE
     Indication: Product used for unknown indication
     Dosage: 60 MG, QD
     Route: 065
  115. DEXILANT [Suspect]
     Active Substance: DEXLANSOPRAZOLE
     Dosage: UNK
     Route: 065
  116. DEXTROSE [Suspect]
     Active Substance: DEXTROSE
     Indication: Nutritional supplementation
     Dosage: 12.5 MG
     Route: 042
  117. DEXTROSE [Suspect]
     Active Substance: DEXTROSE
     Dosage: 12.5 MG, QD
     Route: 042
  118. DEXTROSE [Suspect]
     Active Substance: DEXTROSE
     Dosage: 12.5 G, PRN
     Route: 042
  119. RINGERS AND DEXTROSE SOLUTION [Suspect]
     Active Substance: CALCIUM CHLORIDE\DEXTROSE\POTASSIUM CHLORIDE\SODIUM CHLORIDE
     Indication: Nutritional supplementation
     Dosage: UNK
     Route: 065
  120. RINGERS AND DEXTROSE SOLUTION [Suspect]
     Active Substance: CALCIUM CHLORIDE\DEXTROSE\POTASSIUM CHLORIDE\SODIUM CHLORIDE
     Dosage: UNK
     Route: 065
  121. DIPROSONE [Suspect]
     Active Substance: BETAMETHASONE DIPROPIONATE
     Indication: Swelling
     Dosage: UNK, QD
     Route: 061
  122. DIPYRONE [Suspect]
     Active Substance: DIPYRONE
     Indication: Vitamin supplementation
     Dosage: 5 MG, QD
     Route: 042
  123. DISTIGMINE BROMIDE [Suspect]
     Active Substance: DISTIGMINE BROMIDE
     Indication: Dyspnoea
     Dosage: 1.0 IU, QD
     Route: 048
  124. ALBUTEROL SULFATE [Suspect]
     Active Substance: ALBUTEROL SULFATE
     Indication: Intentional product misuse
     Dosage: UNK
     Route: 065
  125. ALBUTEROL SULFATE [Suspect]
     Active Substance: ALBUTEROL SULFATE
     Indication: Off label use
  126. DOBUTAMINE [Suspect]
     Active Substance: DOBUTAMINE HYDROCHLORIDE
     Indication: Cardiogenic shock
     Dosage: UNK
     Route: 065
  127. DOBUTAMINE [Suspect]
     Active Substance: DOBUTAMINE HYDROCHLORIDE
     Indication: Off label use
     Dosage: UNK, QD
     Route: 042
  128. DOBUTAMINE [Suspect]
     Active Substance: DOBUTAMINE HYDROCHLORIDE
     Dosage: UNK
     Route: 065
  129. DOCUSATE SODIUM [Suspect]
     Active Substance: DOCUSATE SODIUM
     Indication: Product used for unknown indication
     Dosage: UNK
     Route: 065
  130. DULCOLAX NOS [Suspect]
     Active Substance: BISACODYL OR DOCUSATE SODIUM
     Indication: Constipation
     Dosage: 10.0 MG, QD
     Route: 065
  131. FENOTEROL HYDROBROMIDE\IPRATROPIUM BROMIDE [Suspect]
     Active Substance: FENOTEROL HYDROBROMIDE\IPRATROPIUM BROMIDE
     Indication: Dyspnoea
     Dosage: 1 DOSAGE FORM, TID
     Route: 065
  132. FENOTEROL HYDROBROMIDE\IPRATROPIUM BROMIDE [Suspect]
     Active Substance: FENOTEROL HYDROBROMIDE\IPRATROPIUM BROMIDE
     Dosage: UNK, QD
     Route: 065
  133. FENOTEROL HYDROBROMIDE\IPRATROPIUM BROMIDE [Suspect]
     Active Substance: FENOTEROL HYDROBROMIDE\IPRATROPIUM BROMIDE
     Dosage: 4 IU, QD
     Route: 065
  134. FENOTEROL HYDROBROMIDE\IPRATROPIUM BROMIDE [Suspect]
     Active Substance: FENOTEROL HYDROBROMIDE\IPRATROPIUM BROMIDE
     Dosage: 3 DOSAGE FORM, QD
     Route: 065
  135. DIETARY SUPPLEMENT [Suspect]
     Active Substance: DIETARY SUPPLEMENT
     Indication: Product used for unknown indication
     Dosage: 5.0 MG, QD
     Route: 065
  136. PSYLLIUM HUSK [Suspect]
     Active Substance: PSYLLIUM HUSK
     Indication: Vitamin supplementation
     Dosage: 5.0 MG, QD
     Route: 042
  137. FLUTICASONE [Suspect]
     Active Substance: FLUTICASONE
     Indication: Nutritional supplementation
     Dosage: UNK
     Route: 048
  138. FLUTICASONE [Suspect]
     Active Substance: FLUTICASONE
     Dosage: UNK
     Route: 065
  139. FLUTICASONE [Suspect]
     Active Substance: FLUTICASONE
     Dosage: UNK
  140. FLUTICASONE FUROATE [Suspect]
     Active Substance: FLUTICASONE FUROATE
     Indication: Product used for unknown indication
     Dosage: UNK (UMECLIDINIUM BROMIDE)
     Route: 065
  141. FLUTICASONE PROPIONATE [Suspect]
     Active Substance: FLUTICASONE PROPIONATE
     Indication: Dyspnoea
     Dosage: UNK
     Route: 065
  142. FLUTICASONE PROPIONATE [Suspect]
     Active Substance: FLUTICASONE PROPIONATE
     Dosage: 1.0 IU
     Route: 048
  143. FOSRENOL [Suspect]
     Active Substance: LANTHANUM CARBONATE
     Indication: Blood phosphorus increased
     Dosage: UNK
     Route: 065
  144. FOSRENOL [Suspect]
     Active Substance: LANTHANUM CARBONATE
     Indication: Hyperphosphataemia
     Dosage: 500 MG, PRN
     Route: 048
  145. FOSRENOL [Suspect]
     Active Substance: LANTHANUM CARBONATE
     Indication: Off label use
     Dosage: UNK
     Route: 065
  146. FOSRENOL [Suspect]
     Active Substance: LANTHANUM CARBONATE
     Dosage: 500 MG, QD
     Route: 048
  147. FOSRENOL [Suspect]
     Active Substance: LANTHANUM CARBONATE
     Dosage: 500 MG, PRN
     Route: 065
  148. FOSRENOL [Suspect]
     Active Substance: LANTHANUM CARBONATE
     Dosage: 500 MG, QD
     Route: 048
  149. FRAGMIN [Suspect]
     Active Substance: DALTEPARIN SODIUM
     Indication: Thrombosis
     Dosage: 2.5 ML, PRN
     Route: 042
  150. FRAGMIN [Suspect]
     Active Substance: DALTEPARIN SODIUM
     Indication: Pulmonary embolism
     Dosage: UNK
     Route: 065
  151. FRAGMIN [Suspect]
     Active Substance: DALTEPARIN SODIUM
     Dosage: UNK
     Route: 048
  152. FRAGMIN [Suspect]
     Active Substance: DALTEPARIN SODIUM
     Dosage: 12.5 ML
     Route: 048
  153. FRAGMIN [Suspect]
     Active Substance: DALTEPARIN SODIUM
     Dosage: 2.5 ML
     Route: 065
  154. FURAZOLIDONE [Suspect]
     Active Substance: FURAZOLIDONE
     Indication: Product used for unknown indication
     Dosage: 12.5 MG
     Route: 042
  155. FENOTEROL HYDROBROMIDE [Suspect]
     Active Substance: FENOTEROL HYDROBROMIDE
     Indication: Dyspnoea
     Dosage: 1.0 DOSAGE FORM, TID (EVERY 8 HOURS)
     Route: 065
  156. FENOTEROL HYDROBROMIDE [Suspect]
     Active Substance: FENOTEROL HYDROBROMIDE
     Dosage: 4.0 IU, QD
     Route: 050
  157. FENOTEROL HYDROBROMIDE [Suspect]
     Active Substance: FENOTEROL HYDROBROMIDE
     Dosage: UNK
     Route: 065
  158. FENOTEROL HYDROBROMIDE [Suspect]
     Active Substance: FENOTEROL HYDROBROMIDE
     Dosage: 3 DOSAGE FORM, QD
     Route: 065
  159. GABAPENTIN [Suspect]
     Active Substance: GABAPENTIN
     Indication: Off label use
     Dosage: 100 MG, QD
     Route: 048
  160. GABAPENTIN [Suspect]
     Active Substance: GABAPENTIN
     Indication: Neuralgia
     Dosage: 100 MG
     Route: 048
  161. GABAPENTIN [Suspect]
     Active Substance: GABAPENTIN
     Indication: Intentional product misuse
     Dosage: UNK
     Route: 065
  162. GABAPENTIN [Suspect]
     Active Substance: GABAPENTIN
     Indication: Bacterial infection
  163. DEXTROSE [Suspect]
     Active Substance: DEXTROSE
     Indication: Nutritional supplementation
     Dosage: 12.5 MG
     Route: 042
  164. DEXTROSE [Suspect]
     Active Substance: DEXTROSE
     Indication: Anticoagulant therapy
     Dosage: 12.5 G, QD
     Route: 042
  165. DEXTROSE [Suspect]
     Active Substance: DEXTROSE
     Indication: Off label use
     Dosage: 250 ML, QD
     Route: 042
  166. DEXTROSE [Suspect]
     Active Substance: DEXTROSE
     Indication: Intentional product misuse
     Dosage: 50 ML, QD
     Route: 042
  167. DEXTROSE [Suspect]
     Active Substance: DEXTROSE
     Dosage: 12.0 G, QD
     Route: 042
  168. DEXTROSE [Suspect]
     Active Substance: DEXTROSE
     Dosage: 1.25 G
     Route: 042
  169. DEXTROSE [Suspect]
     Active Substance: DEXTROSE
     Dosage: 1.0 DOSAGE FORM, QD
     Route: 058
  170. DEXTROSE [Suspect]
     Active Substance: DEXTROSE
     Dosage: 12.5 MG, QD
     Route: 042
  171. DEXTROSE [Suspect]
     Active Substance: DEXTROSE
     Dosage: 50 MG, QD
     Route: 065
  172. DEXTROSE [Suspect]
     Active Substance: DEXTROSE
     Dosage: 12.5 MG, PRN
     Route: 042
  173. DEXTROSE [Suspect]
     Active Substance: DEXTROSE
     Dosage: 12.5 G, QD
     Route: 065
  174. HERBALS\PAULLINIA CUPANA SEED [Suspect]
     Active Substance: HERBALS\PAULLINIA CUPANA SEED
     Indication: Nutritional supplementation
     Dosage: 17.0 MG
     Route: 042
  175. HERBALS\PAULLINIA CUPANA SEED [Suspect]
     Active Substance: HERBALS\PAULLINIA CUPANA SEED
     Dosage: 17.0 MG
     Route: 042
  176. HERBALS\PAULLINIA CUPANA SEED [Suspect]
     Active Substance: HERBALS\PAULLINIA CUPANA SEED
     Dosage: UNK
     Route: 065
  177. HEPARIN CALCIUM [Suspect]
     Active Substance: HEPARIN CALCIUM
     Indication: Anticoagulant therapy
     Dosage: 50.0 ML, PRN
     Route: 042
  178. HEPARIN SODIUM [Suspect]
     Active Substance: HEPARIN SODIUM
     Indication: Off label use
     Dosage: 50.0 ML, QD
     Route: 042
  179. HEPARIN SODIUM [Suspect]
     Active Substance: HEPARIN SODIUM
     Indication: Intentional product misuse
     Dosage: 50.0 ML, QD
     Route: 065
  180. HEPARIN SODIUM [Suspect]
     Active Substance: HEPARIN SODIUM
     Indication: Anticoagulant therapy
     Dosage: 50 ML, PRN
     Route: 042
  181. HEPARIN SODIUM [Suspect]
     Active Substance: HEPARIN SODIUM
     Indication: Product used for unknown indication
     Dosage: 50 ML
     Route: 017
  182. HEPARIN SODIUM [Suspect]
     Active Substance: HEPARIN SODIUM
     Dosage: 250.0 ML
     Route: 042
  183. HEPARIN SODIUM [Suspect]
     Active Substance: HEPARIN SODIUM
     Dosage: 50.0 ML, QD
     Route: 042
  184. HEPARIN SODIUM [Suspect]
     Active Substance: HEPARIN SODIUM
     Dosage: 250.0 ML, PRN
     Route: 042
  185. HEPARIN SODIUM [Suspect]
     Active Substance: HEPARIN SODIUM
     Dosage: 250.0 ML, PRN
     Route: 042
  186. HEPARIN SODIUM [Suspect]
     Active Substance: HEPARIN SODIUM
     Dosage: UNK
     Route: 065
  187. HEPARIN SODIUM AND DEXTROSE [Suspect]
     Active Substance: HEPARIN SODIUM
     Indication: Anticoagulant therapy
     Dosage: 250.0 MG, QD
     Route: 042
  188. HEPARIN SODIUM AND DEXTROSE [Suspect]
     Active Substance: HEPARIN SODIUM
     Dosage: 50.0 ML, PRN
     Route: 042
  189. HEPARIN SODIUM AND DEXTROSE [Suspect]
     Active Substance: HEPARIN SODIUM
     Dosage: 250.0 ML, PRN
     Route: 042
  190. HEPARIN SODIUM AND DEXTROSE [Suspect]
     Active Substance: HEPARIN SODIUM
     Dosage: 50.0 ML, QD
     Route: 042
  191. HEPARIN SODIUM AND DEXTROSE [Suspect]
     Active Substance: HEPARIN SODIUM
     Dosage: UNK
     Route: 065
  192. UNSPECIFIED INGREDIENT [Suspect]
     Active Substance: UNSPECIFIED INGREDIENT
     Indication: Anticoagulant therapy
     Dosage: 50.0 ML, QD
     Route: 042
  193. UNSPECIFIED INGREDIENT [Suspect]
     Active Substance: UNSPECIFIED INGREDIENT
     Dosage: 250.0 ML, QD
     Route: 042
  194. UNSPECIFIED INGREDIENT [Suspect]
     Active Substance: UNSPECIFIED INGREDIENT
     Dosage: UNK
     Route: 042
  195. HORSE CHESTNUT [Suspect]
     Active Substance: HORSE CHESTNUT
     Indication: Product used for unknown indication
     Dosage: UNK
     Route: 065
  196. HYDROCORTISONE [Suspect]
     Active Substance: HYDROCORTISONE
     Indication: Angioedema
     Dosage: 100.0 MG
     Route: 051
  197. HYDROMORPHONE [Suspect]
     Active Substance: HYDROMORPHONE
     Indication: Analgesic therapy
     Dosage: 6.0 MG, Q5H
     Route: 058
  198. HYDROMORPHONE [Suspect]
     Active Substance: HYDROMORPHONE
     Dosage: 6.0 MG, Q4H
     Route: 058
  199. HYDROMORPHONE [Suspect]
     Active Substance: HYDROMORPHONE
     Dosage: 1.0 MG, Q4H
     Route: 058
  200. HYDROMORPHONE [Suspect]
     Active Substance: HYDROMORPHONE
     Dosage: 4.0 MG, Q4H
     Route: 058
  201. HYDROMORPHONE [Suspect]
     Active Substance: HYDROMORPHONE
     Dosage: 6.0 MG, Q6H
     Route: 058
  202. HYDROMORPHONE [Suspect]
     Active Substance: HYDROMORPHONE
     Dosage: 24.0 MG, Q6H
     Route: 058
  203. HYDROMORPHONE [Suspect]
     Active Substance: HYDROMORPHONE
     Dosage: 24 MG, QID
     Route: 058
  204. HYDROMORPHONE [Suspect]
     Active Substance: HYDROMORPHONE
     Dosage: 1 MG, QID
     Route: 058
  205. HYDROMORPHONE [Suspect]
     Active Substance: HYDROMORPHONE
     Dosage: 6.0 MG (6 EVERY 1 DAYS)
     Route: 058
  206. HYDROMORPHONE [Suspect]
     Active Substance: HYDROMORPHONE
     Dosage: 24.0 MG (1 EVERY 4 HOURS)
     Route: 058
  207. HYDROMORPHONE [Suspect]
     Active Substance: HYDROMORPHONE
     Dosage: 6.0 MG, QID
     Route: 058
  208. HYDROMORPHONE [Suspect]
     Active Substance: HYDROMORPHONE
     Dosage: UNK
     Route: 065
  209. HYDROMORPHONE HYDROCHLORIDE [Suspect]
     Active Substance: HYDROMORPHONE HYDROCHLORIDE
     Indication: Off label use
     Dosage: 1.0 MG, Q4H
     Route: 030
  210. HYDROMORPHONE HYDROCHLORIDE [Suspect]
     Active Substance: HYDROMORPHONE HYDROCHLORIDE
     Indication: Analgesic therapy
     Dosage: 6.0 MG, Q6H
     Route: 030
  211. HYDROMORPHONE HYDROCHLORIDE [Suspect]
     Active Substance: HYDROMORPHONE HYDROCHLORIDE
     Dosage: 4.0 MG, Q4H
     Route: 030
  212. HYDROMORPHONE HYDROCHLORIDE [Suspect]
     Active Substance: HYDROMORPHONE HYDROCHLORIDE
     Dosage: 24.0 MG, Q6H
     Route: 030
  213. HYDROMORPHONE HYDROCHLORIDE [Suspect]
     Active Substance: HYDROMORPHONE HYDROCHLORIDE
     Dosage: 6.0 MG, QID
     Route: 030
  214. HYDROMORPHONE HYDROCHLORIDE [Suspect]
     Active Substance: HYDROMORPHONE HYDROCHLORIDE
     Dosage: 1.0 MG, QD
     Route: 058
  215. HYDROMORPHONE HYDROCHLORIDE [Suspect]
     Active Substance: HYDROMORPHONE HYDROCHLORIDE
     Dosage: 24.0 MG, Q4H
     Route: 058
  216. HYDROMORPHONE HYDROCHLORIDE [Suspect]
     Active Substance: HYDROMORPHONE HYDROCHLORIDE
     Dosage: 1.0 MG, Q4H
     Route: 058
  217. HYDROMORPHONE HYDROCHLORIDE [Suspect]
     Active Substance: HYDROMORPHONE HYDROCHLORIDE
     Dosage: 17.0 MG, QD
     Route: 058
  218. HYDROMORPHONE HYDROCHLORIDE [Suspect]
     Active Substance: HYDROMORPHONE HYDROCHLORIDE
     Dosage: 24 MG, QD
     Route: 058
  219. HYDROMORPHONE HYDROCHLORIDE [Suspect]
     Active Substance: HYDROMORPHONE HYDROCHLORIDE
     Dosage: 6.0 MG, Q4H
     Route: 058
  220. HYDROMORPHONE HYDROCHLORIDE [Suspect]
     Active Substance: HYDROMORPHONE HYDROCHLORIDE
     Dosage: 1.0 MG (1 EVERY 6 DAYS)
     Route: 058
  221. HYDROMORPHONE HYDROCHLORIDE [Suspect]
     Active Substance: HYDROMORPHONE HYDROCHLORIDE
     Dosage: 96.0 MG, QD
     Route: 058
  222. INSULIN ASPART [Suspect]
     Active Substance: INSULIN ASPART
     Indication: Off label use
     Dosage: UNK (SUSPENSION)
     Route: 058
  223. INSULIN ASPART [Suspect]
     Active Substance: INSULIN ASPART
     Indication: Diabetes mellitus
     Dosage: UNK (SUSPENSION)
     Route: 048
  224. INSULIN ASPART [Suspect]
     Active Substance: INSULIN ASPART
     Dosage: UNK (SUSPENSION)
     Route: 058
  225. INSULIN NOS [Suspect]
     Active Substance: INSULIN NOS
     Indication: Diabetes mellitus
     Dosage: UNK
     Route: 065
  226. IPRATROPIUM BROMIDE [Suspect]
     Active Substance: IPRATROPIUM BROMIDE
     Indication: Dyspnoea
     Dosage: 1.0 DOSAGE FORM, QID
  227. IPRATROPIUM BROMIDE [Suspect]
     Active Substance: IPRATROPIUM BROMIDE
     Dosage: 1 DOSAGE FORM, Q6H
  228. IPRATROPIUM BROMIDE [Suspect]
     Active Substance: IPRATROPIUM BROMIDE
     Dosage: 1 DOSAGE FORM, QD
  229. IPRATROPIUM BROMIDE [Suspect]
     Active Substance: IPRATROPIUM BROMIDE
     Dosage: UNK
     Route: 006
  230. IRON [Suspect]
     Active Substance: IRON
     Indication: Iron deficiency
     Dosage: UNK, Q6H
     Route: 042
  231. PANAX GINSENG WHOLE [Suspect]
     Active Substance: PANAX GINSENG WHOLE
     Indication: Nutritional supplementation
     Dosage: 12.0 MG
     Route: 065
  232. LEVOPHED [Suspect]
     Active Substance: NOREPINEPHRINE BITARTRATE
     Indication: Stress
     Dosage: UNK (ORAL)
     Route: 042
  233. LEVOPHED [Suspect]
     Active Substance: NOREPINEPHRINE BITARTRATE
     Dosage: 3.0 MG, QD (ORAL)
     Route: 042
  234. LEVOPHED [Suspect]
     Active Substance: NOREPINEPHRINE BITARTRATE
     Dosage: UNK
     Route: 042
  235. LUTEIN [Suspect]
     Active Substance: LUTEIN
     Indication: Off label use
     Dosage: UNK
     Route: 065
  236. LUTEIN [Suspect]
     Active Substance: LUTEIN
     Indication: Nutritional supplementation
     Dosage: 12.5 MG, PRN
     Route: 042
  237. LUTEIN [Suspect]
     Active Substance: LUTEIN
     Indication: Intentional product misuse
  238. MAALOX ANTACID [Suspect]
     Active Substance: ALUMINUM HYDROXIDE\DIMETHICONE\MAGNESIUM HYDROXIDE
     Indication: Constipation
     Dosage: 133.0 ML, PRN
     Route: 054
  239. MAALOX ANTACID [Suspect]
     Active Substance: ALUMINUM HYDROXIDE\DIMETHICONE\MAGNESIUM HYDROXIDE
     Dosage: 133.0 ML, PRN
     Route: 054
  240. POLYETHYLENE GLYCOLS [Suspect]
     Active Substance: POLYETHYLENE GLYCOLS
     Indication: Constipation
     Dosage: 17.0 G
     Route: 048
  241. POLYETHYLENE GLYCOLS [Suspect]
     Active Substance: POLYETHYLENE GLYCOLS
     Indication: Off label use
     Dosage: 17.0 G
     Route: 048
  242. POLYETHYLENE GLYCOLS [Suspect]
     Active Substance: POLYETHYLENE GLYCOLS
     Dosage: 3.0 G, QW
     Route: 048
  243. POLYETHYLENE GLYCOLS [Suspect]
     Active Substance: POLYETHYLENE GLYCOLS
     Dosage: 2.5 ML, QW
     Route: 048
  244. POLYETHYLENE GLYCOL 3350 [Suspect]
     Active Substance: POLYETHYLENE GLYCOL 3350
     Indication: Constipation
     Dosage: 3.0 MG, QW
     Route: 048
  245. POLYETHYLENE GLYCOL 3350 [Suspect]
     Active Substance: POLYETHYLENE GLYCOL 3350
     Indication: Off label use
     Dosage: UNK
     Route: 048
  246. POLYETHYLENE GLYCOL 3350 [Suspect]
     Active Substance: POLYETHYLENE GLYCOL 3350
     Dosage: 17.0 G, QD
     Route: 048
  247. POLYETHYLENE GLYCOL 3350 [Suspect]
     Active Substance: POLYETHYLENE GLYCOL 3350
     Dosage: 17.0 MG
     Route: 048
  248. POLYETHYLENE GLYCOL 3350 [Suspect]
     Active Substance: POLYETHYLENE GLYCOL 3350
     Dosage: 17.0 G, QD
     Route: 065
  249. POLYETHYLENE GLYCOL 3350 [Suspect]
     Active Substance: POLYETHYLENE GLYCOL 3350
     Dosage: 3.0 MG, QW
     Route: 065
  250. MAGNESIUM OXIDE [Suspect]
     Active Substance: MAGNESIUM OXIDE
     Indication: Constipation
     Dosage: 113.0 ML, PRN
     Route: 054
  251. MAGNESIUM OXIDE [Suspect]
     Active Substance: MAGNESIUM OXIDE
     Dosage: UNK
     Route: 065
  252. MAGNESIUM TRISILICATE [Suspect]
     Active Substance: MAGNESIUM TRISILICATE
     Indication: Constipation
     Dosage: 133.0 ML, PRN
     Route: 065
  253. MANNITOL [Suspect]
     Active Substance: MANNITOL
     Indication: Nutritional supplementation
     Dosage: 12.5 G
     Route: 042
  254. MELATONIN [Suspect]
     Active Substance: MELATONIN
     Indication: Sleep disorder therapy
     Dosage: 3.0 MG, QD
     Route: 048
  255. MELATONIN [Suspect]
     Active Substance: MELATONIN
     Indication: Off label use
     Dosage: UNK
     Route: 065
  256. MELATONIN [Suspect]
     Active Substance: MELATONIN
     Indication: Intentional product misuse
  257. METAMIZOLE SODIUM [Suspect]
     Active Substance: METAMIZOLE SODIUM
     Indication: Vitamin supplementation
     Dosage: 5.0 MG, QD
     Route: 042
  258. METRONIDAZOLE [Suspect]
     Active Substance: METRONIDAZOLE
     Indication: Bacterial infection
     Dosage: 1500 MG, QD
     Route: 048
  259. METRONIDAZOLE [Suspect]
     Active Substance: METRONIDAZOLE
     Indication: Off label use
     Dosage: 500 MG, QD
     Route: 048
  260. METRONIDAZOLE [Suspect]
     Active Substance: METRONIDAZOLE
     Dosage: 500 MG, Q8H
     Route: 048
  261. METRONIDAZOLE [Suspect]
     Active Substance: METRONIDAZOLE
     Dosage: 500 MG, TID
     Route: 048
  262. METRONIDAZOLE [Suspect]
     Active Substance: METRONIDAZOLE
     Dosage: UNK
     Route: 065
  263. SODIUM PHOSPHATE, MONOBASIC [Suspect]
     Active Substance: SODIUM PHOSPHATE, MONOBASIC
     Indication: Constipation
     Dosage: 133.0 ML, PRN
     Route: 054
  264. NOREPINEPHRINE [Suspect]
     Active Substance: NOREPINEPHRINE
     Indication: Stress
     Dosage: 1.0 DOSAGE FORM, QD
     Route: 065
  265. NOREPINEPHRINE [Suspect]
     Active Substance: NOREPINEPHRINE
     Indication: Off label use
     Dosage: 1.0 DOSAGE FORM, QD
     Route: 048
  266. NOREPINEPHRINE [Suspect]
     Active Substance: NOREPINEPHRINE
     Dosage: 3 MG, QD
     Route: 048
  267. NOREPINEPHRINE [Suspect]
     Active Substance: NOREPINEPHRINE
     Dosage: 3 MG
     Route: 042
  268. NOREPINEPHRINE BITARTRATE [Suspect]
     Active Substance: NOREPINEPHRINE BITARTRATE
     Indication: Stress
     Dosage: 3.0 MG, QD (LIQUID/ ORAL)
     Route: 042
  269. DIETARY SUPPLEMENT [Suspect]
     Active Substance: DIETARY SUPPLEMENT
     Indication: Vitamin supplementation
     Dosage: 5.0 MG, QD
     Route: 042
  270. DIETARY SUPPLEMENT [Suspect]
     Active Substance: DIETARY SUPPLEMENT
     Dosage: 5.0 MG, QD
     Route: 042
  271. METAMIZOLE SODIUM [Suspect]
     Active Substance: METAMIZOLE SODIUM
     Indication: Vitamin supplementation
     Dosage: 5.0 MG
     Route: 042
  272. ONDANSETRON [Suspect]
     Active Substance: ONDANSETRON
     Indication: Vomiting
     Dosage: 4.0 MG, QD
     Route: 042
  273. ONDANSETRON [Suspect]
     Active Substance: ONDANSETRON
     Indication: Off label use
     Dosage: 12.0 MG, Q8H
     Route: 042
  274. ONDANSETRON [Suspect]
     Active Substance: ONDANSETRON
     Indication: Nausea
     Dosage: 12.0 MG, TID
     Route: 042
  275. ONDANSETRON [Suspect]
     Active Substance: ONDANSETRON
     Dosage: 8.0 MG, Q8H
     Route: 042
  276. ONDANSETRON [Suspect]
     Active Substance: ONDANSETRON
     Dosage: 40.0 MG, Q8H
     Route: 042
  277. ONDANSETRON [Suspect]
     Active Substance: ONDANSETRON
     Dosage: 36.0 MG, Q8H
     Route: 042
  278. ONDANSETRON [Suspect]
     Active Substance: ONDANSETRON
     Dosage: 24 MG, Q8H
     Route: 065
  279. ONDANSETRON [Suspect]
     Active Substance: ONDANSETRON
     Dosage: 41.14 MG, Q8H
     Route: 042
  280. ONDANSETRON [Suspect]
     Active Substance: ONDANSETRON
     Dosage: 4.0 MG, Q8H
     Route: 042
  281. ONDANSETRON [Suspect]
     Active Substance: ONDANSETRON
     Dosage: 4.0 MG, TID
     Route: 042
  282. ONDANSETRON [Suspect]
     Active Substance: ONDANSETRON
     Dosage: 1.0 DOSAGE FORM
     Route: 042
  283. OSELTAMIVIR PHOSPHATE [Suspect]
     Active Substance: OSELTAMIVIR PHOSPHATE
     Indication: Product used for unknown indication
     Dosage: 12.5 MG
     Route: 065
  284. OSELTAMIVIR PHOSPHATE [Suspect]
     Active Substance: OSELTAMIVIR PHOSPHATE
     Dosage: 133.0 ML
     Route: 054
  285. OTRIVIN [Suspect]
     Active Substance: XYLOMETAZOLINE
     Indication: Dyspnoea
     Dosage: UNK
  286. ASIAN GINSENG [Suspect]
     Active Substance: ASIAN GINSENG
     Indication: Nutritional supplementation
     Dosage: 12.5 MG
     Route: 065
  287. ASIAN GINSENG [Suspect]
     Active Substance: ASIAN GINSENG
     Dosage: 12.5 MG (PANAX GINSENG;PAULLINIA CUPANA)
     Route: 042
  288. PHYTONADIONE [Suspect]
     Active Substance: PHYTONADIONE
     Indication: Vitamin supplementation
     Dosage: 5.0 MG, QD
     Route: 017
  289. PHYTONADIONE [Suspect]
     Active Substance: PHYTONADIONE
     Dosage: 5.0 MG, QD
     Route: 017
  290. PHYTONADIONE [Suspect]
     Active Substance: PHYTONADIONE
     Indication: Vitamin supplementation
     Dosage: 5.0 MG, PRN
     Route: 017
  291. PHYTONADIONE [Suspect]
     Active Substance: PHYTONADIONE
     Indication: Off label use
     Dosage: 5.0 MG, QD
     Route: 017
  292. PHYTONADIONE [Suspect]
     Active Substance: PHYTONADIONE
     Dosage: 5.0 MG, PRN
     Route: 017
  293. POTASSIUM CHLORIDE [Suspect]
     Active Substance: POTASSIUM CHLORIDE
     Indication: Constipation
     Dosage: 17.0 G, QD
     Route: 048
  294. POTASSIUM CHLORIDE [Suspect]
     Active Substance: POTASSIUM CHLORIDE
     Dosage: UNK
     Route: 065
  295. POTASSIUM PERCHLORATE [Suspect]
     Active Substance: POTASSIUM PERCHLORATE
     Indication: Product used for unknown indication
     Dosage: UNK
     Route: 065
  296. POTASSIUM PERCHLORATE [Suspect]
     Active Substance: POTASSIUM PERCHLORATE
     Dosage: 17.0 MG, QD
     Route: 048
  297. PREVACID [Suspect]
     Active Substance: LANSOPRAZOLE
     Indication: Antacid therapy
     Dosage: 30 MG, QD (FASTAB)
     Route: 065
  298. SODIUM FERRIC GLUCONATE COMPLEX [Suspect]
     Active Substance: SODIUM FERRIC GLUCONATE COMPLEX
     Indication: Iron deficiency
     Dosage: 17.85 MG, QW
     Route: 042
  299. SODIUM FERRIC GLUCONATE COMPLEX [Suspect]
     Active Substance: SODIUM FERRIC GLUCONATE COMPLEX
     Dosage: 133.0 ML
     Route: 065
  300. SODIUM FERRIC GLUCONATE COMPLEX [Suspect]
     Active Substance: SODIUM FERRIC GLUCONATE COMPLEX
     Dosage: 4.64 MG, Q12MO
     Route: 065
  301. SODIUM FERRIC GLUCONATE COMPLEX [Suspect]
     Active Substance: SODIUM FERRIC GLUCONATE COMPLEX
     Dosage: 1.25 MG, QW
     Route: 042
  302. SODIUM FERRIC GLUCONATE COMPLEX [Suspect]
     Active Substance: SODIUM FERRIC GLUCONATE COMPLEX
     Dosage: 125.0 MG, Q12MO
     Route: 042
  303. SODIUM PHOSPHATE [Suspect]
     Active Substance: SODIUM PHOSPHATE
     Indication: Constipation
     Dosage: 133 ML, PRN
     Route: 054
  304. SODIUM PHOSPHATE, MONOBASIC [Suspect]
     Active Substance: SODIUM PHOSPHATE, MONOBASIC
     Indication: Constipation
     Dosage: 133.0 ML, PRN
     Route: 054
  305. SODIUM PHOSPHATE, MONOBASIC [Suspect]
     Active Substance: SODIUM PHOSPHATE, MONOBASIC
     Dosage: 133.0 UNK
     Route: 065
  306. SODIUM PICOSULFATE [Suspect]
     Active Substance: SODIUM PICOSULFATE
     Indication: Constipation
     Dosage: 10.0 MG, PRN
     Route: 054
  307. SODIUM PICOSULFATE [Suspect]
     Active Substance: SODIUM PICOSULFATE
     Indication: Analgesic therapy
     Dosage: 10.0 MG, PRN
     Route: 054
  308. SODIUM PICOSULFATE [Suspect]
     Active Substance: SODIUM PICOSULFATE
     Dosage: 12.5 G, QMO
     Route: 054
  309. SUCROSE [Suspect]
     Active Substance: SUCROSE
     Indication: Iron deficiency
     Dosage: 12.0 MG, QMO
     Route: 042
  310. SUCROSE [Suspect]
     Active Substance: SUCROSE
     Dosage: 12.0 MG, QMO
     Route: 042
  311. TRESIBA [Suspect]
     Active Substance: INSULIN DEGLUDEC
     Indication: Diabetes mellitus
     Dosage: 1.0 DOSAGE FORM, QD (SOLUTION)
     Route: 058
  312. TRESIBA [Suspect]
     Active Substance: INSULIN DEGLUDEC
     Dosage: 1.0 DOSAGE FORM, QD (SOLUTION)
     Route: 058
  313. TRESIBA [Suspect]
     Active Substance: INSULIN DEGLUDEC
     Dosage: UNK
     Route: 058
  314. TRESIBA [Suspect]
     Active Substance: INSULIN DEGLUDEC
     Dosage: UNK
     Route: 058
  315. UMECLIDINIUM BROMIDE [Suspect]
     Active Substance: UMECLIDINIUM BROMIDE
     Indication: Dyspnoea
     Dosage: 1.0 DOSAGE FORM
     Route: 048
  316. UMECLIDINIUM BROMIDE [Suspect]
     Active Substance: UMECLIDINIUM BROMIDE
     Dosage: 1.0 IU, QD
     Route: 048
  317. UMECLIDINIUM BROMIDE [Suspect]
     Active Substance: UMECLIDINIUM BROMIDE
     Dosage: 1.0 IU, QD
     Route: 048
  318. VASOPRESSIN [Suspect]
     Active Substance: VASOPRESSIN
     Indication: Drug therapy
     Dosage: UNK
     Route: 042
  319. VASOPRESSIN [Suspect]
     Active Substance: VASOPRESSIN
     Dosage: 50.0 ML, QD
     Route: 042
  320. VASOPRESSIN [Suspect]
     Active Substance: VASOPRESSIN
     Dosage: 250.0 ML, QD
     Route: 042
  321. VASOPRESSIN [Suspect]
     Active Substance: VASOPRESSIN
     Dosage: UNK
     Route: 017
  322. VILANTEROL TRIFENATATE [Suspect]
     Active Substance: VILANTEROL TRIFENATATE
     Indication: Dyspnoea
     Dosage: 1 IU, QD
     Route: 048
  323. VILANTEROL TRIFENATATE [Suspect]
     Active Substance: VILANTEROL TRIFENATATE
     Dosage: UNK
     Route: 065
  324. VITAMIN B6 [Suspect]
     Active Substance: PYRIDOXINE HYDROCHLORIDE
     Indication: Vitamin supplementation
     Dosage: UNK (CAPSULE)
     Route: 048
  325. VITAMIN B6 [Suspect]
     Active Substance: PYRIDOXINE HYDROCHLORIDE
     Indication: Constipation
     Dosage: 1.0 IU, QD (SOLUTION)
     Route: 030
  326. VITAMIN B6 [Suspect]
     Active Substance: PYRIDOXINE HYDROCHLORIDE
     Indication: Off label use
     Dosage: 4.0 IU, 4 EVERY 6 HOURS, SOLUTION
     Route: 030
  327. VITAMIN B6 [Suspect]
     Active Substance: PYRIDOXINE HYDROCHLORIDE
     Dosage: 10 MG, SOLUTION
     Route: 030
  328. VITAMIN B6 [Suspect]
     Active Substance: PYRIDOXINE HYDROCHLORIDE
     Dosage: 4.0 IU, QD, SOLUTION
     Route: 030
  329. VITAMIN B6 [Suspect]
     Active Substance: PYRIDOXINE HYDROCHLORIDE
     Dosage: UNK, QID
     Route: 048
  330. VITAMIN B6 [Suspect]
     Active Substance: PYRIDOXINE HYDROCHLORIDE
     Dosage: UNK, QD (CAPSULE)
     Route: 048
  331. VITAMIN E [Suspect]
     Active Substance: .ALPHA.-TOCOPHEROL
     Indication: Nutritional supplementation
     Dosage: 12.5 G
     Route: 042
  332. VITAMIN E [Suspect]
     Active Substance: .ALPHA.-TOCOPHEROL
     Dosage: 12.5 G
     Route: 042
  333. VITAMIN K1 [Suspect]
     Active Substance: PHYTONADIONE
     Indication: Vitamin supplementation
     Dosage: 5.0 MG, QD
     Route: 042
  334. WARFARIN [Suspect]
     Active Substance: WARFARIN
     Indication: Thrombosis
     Dosage: UNK
     Route: 048
  335. WARFARIN [Suspect]
     Active Substance: WARFARIN
     Indication: Off label use
     Dosage: 2.0 ML, QD
     Route: 048
  336. WARFARIN [Suspect]
     Active Substance: WARFARIN
     Indication: Intentional product misuse
     Dosage: 2.0 G, QD
     Route: 048
  337. WARFARIN [Suspect]
     Active Substance: WARFARIN
     Dosage: 2 MG, QD
     Route: 048
  338. WARFARIN [Suspect]
     Active Substance: WARFARIN
     Dosage: 2 G, QD
     Route: 048
  339. XANTOFYL PALMITATE [Suspect]
     Active Substance: XANTOFYL PALMITATE
     Indication: Nutritional supplementation
     Dosage: 5.0 MG, QD
     Route: 042
  340. XANTOFYL PALMITATE [Suspect]
     Active Substance: XANTOFYL PALMITATE
     Dosage: 12.5 G, PRN (AS REQUIRED)
     Route: 042
  341. XANTOFYL PALMITATE [Suspect]
     Active Substance: XANTOFYL PALMITATE
     Dosage: UNK
     Route: 065
  342. XYLOMETAZOLINE [Suspect]
     Active Substance: XYLOMETAZOLINE
     Indication: Dyspnoea
     Dosage: UNK
     Route: 065
  343. XYLOMETAZOLINE [Suspect]
     Active Substance: XYLOMETAZOLINE
     Dosage: UNK, QD
     Route: 050
  344. XYLOMETAZOLINE [Suspect]
     Active Substance: XYLOMETAZOLINE
     Dosage: UNK, QD
  345. ZOCOR [Suspect]
     Active Substance: SIMVASTATIN
     Indication: Blood cholesterol increased
     Dosage: 40.0 MG, QD
     Route: 048
  346. DIETARY SUPPLEMENT [Suspect]
     Active Substance: DIETARY SUPPLEMENT
     Indication: Vitamin supplementation
     Dosage: UNK
     Route: 065
  347. DIETARY SUPPLEMENT [Suspect]
     Active Substance: DIETARY SUPPLEMENT
     Indication: Vitamin D
     Dosage: 5.0 MG, QD
     Route: 042
  348. DEXLANSOPRAZOLE [Suspect]
     Active Substance: DEXLANSOPRAZOLE
     Indication: Product used for unknown indication
     Dosage: UNK
     Route: 065
  349. LYPRESSIN [Suspect]
     Active Substance: LYPRESSIN
     Indication: Drug therapy
     Dosage: UNK
     Route: 042
  350. IPRATROPIUM BROMIDE\XYLOMETAZOLINE HYDROCHLORIDE [Suspect]
     Active Substance: IPRATROPIUM BROMIDE\XYLOMETAZOLINE HYDROCHLORIDE
     Indication: Dyspnoea
     Dosage: UNK
  351. POLYETHYLENE GLYCOL 3350\POTASSIUM CHLORIDE\SODIUM BICARBONATE\SODIUM [Suspect]
     Active Substance: POLYETHYLENE GLYCOL 3350\POTASSIUM CHLORIDE\SODIUM BICARBONATE\SODIUM CHLORIDE\SODIUM SULFATE
     Indication: Constipation
     Dosage: 17.0 G, QD
     Route: 065
  352. NOVORAPID [Suspect]
     Active Substance: INSULIN ASPART
     Indication: Diabetes mellitus
     Dosage: UNK
     Route: 058
  353. BISMUTH SUBNITRATE [Suspect]
     Active Substance: BISMUTH SUBNITRATE
     Indication: Constipation
     Dosage: 133 MG, PRN
     Route: 065
  354. BISMUTH SUBNITRATE [Suspect]
     Active Substance: BISMUTH SUBNITRATE
     Dosage: 133 ML, PRN
     Route: 054
  355. BIOTIN [Suspect]
     Active Substance: BIOTIN
     Indication: Vitamin supplementation
     Dosage: 50 MG, QD
     Route: 042
  356. SODIUM [Suspect]
     Active Substance: SODIUM
     Indication: Iron deficiency
     Dosage: 4.64 MG, Q4W
     Route: 042
  357. IPRATROPIUM [Suspect]
     Active Substance: IPRATROPIUM
     Indication: Dyspnoea
     Dosage: UNK, Q6H
  358. IPRATROPIUM [Suspect]
     Active Substance: IPRATROPIUM
     Dosage: UNK, QD
  359. IPRATROPIUM [Suspect]
     Active Substance: IPRATROPIUM
     Dosage: UNK, Q6H
  360. IPRATROPIUM [Suspect]
     Active Substance: IPRATROPIUM
     Dosage: 1 DOSAGE FORM, QD
  361. INSULIN DEGLUDEC [Suspect]
     Active Substance: INSULIN DEGLUDEC
     Indication: Diabetes mellitus
     Dosage: UNK
     Route: 058
  362. LANTHANUM CARBONATE [Suspect]
     Active Substance: LANTHANUM CARBONATE
     Indication: Blood phosphorus increased
     Dosage: 500 MG, PRN
     Route: 048
  363. ALLANTOIN [Suspect]
     Active Substance: ALLANTOIN
     Indication: Constipation
     Dosage: 17 G, QD
     Route: 048
  364. BETA CAROTENE [Concomitant]
     Active Substance: BETA CAROTENE
     Indication: Nutritional supplementation
     Dosage: UNK
     Route: 065
  365. BETA CAROTENE [Concomitant]
     Active Substance: BETA CAROTENE
     Dosage: 12.5 IU, PRN
     Route: 042
  366. BETA CAROTENE [Concomitant]
     Active Substance: BETA CAROTENE
     Dosage: 12.5 G, PRN
     Route: 042
  367. BETA CAROTENE [Concomitant]
     Active Substance: BETA CAROTENE
     Dosage: 12.5 G
     Route: 042
  368. CALCIUM GLUCONATE [Concomitant]
     Active Substance: CALCIUM GLUCONATE
     Indication: Product used for unknown indication
     Dosage: UNK
     Route: 065
  369. CHOLECALCIFEROL [Concomitant]
     Active Substance: CHOLECALCIFEROL
     Indication: Product used for unknown indication
     Dosage: UNK
     Route: 065
  370. INSULIN NOS [Concomitant]
     Active Substance: INSULIN NOS
     Indication: Product used for unknown indication
     Dosage: UNK
     Route: 065
  371. RIBOFLAVIN [Concomitant]
     Active Substance: RIBOFLAVIN
     Indication: Product used for unknown indication
     Dosage: UNK
     Route: 065
  372. VITAMIN D [Concomitant]
     Active Substance: VITAMIN D NOS
     Indication: Product used for unknown indication
     Dosage: UNK
     Route: 065
  373. HYDROMORPHONE [Concomitant]
     Active Substance: HYDROMORPHONE
     Indication: Analgesic therapy
     Dosage: 96 MG
     Route: 065
  374. HYDROMORPHONE [Concomitant]
     Active Substance: HYDROMORPHONE
     Dosage: 1 MG
     Route: 065
  375. HYDROMORPHONE [Concomitant]
     Active Substance: HYDROMORPHONE
     Dosage: 24 MG
     Route: 065
  376. AMLODIPINE [Concomitant]
     Active Substance: AMLODIPINE BESYLATE
     Indication: Product used for unknown indication
     Dosage: UNK
     Route: 065
  377. POTASSIUM [Concomitant]
     Active Substance: POTASSIUM
     Indication: Product used for unknown indication
     Dosage: 17 G
     Route: 065
  378. VITAMIN C [Concomitant]
     Active Substance: ASCORBIC ACID
     Indication: Product used for unknown indication
     Dosage: 17 G
     Route: 065

REACTIONS (24)
  - Myasthenia gravis [Fatal]
  - Blood cholesterol increased [Fatal]
  - Blood uric acid increased [Fatal]
  - Off label use [Fatal]
  - Cardiogenic shock [Fatal]
  - Abdominal distension [Fatal]
  - Abdominal pain [Fatal]
  - Appendicitis [Fatal]
  - Appendicolith [Fatal]
  - Ascites [Fatal]
  - Blood phosphorus increased [Fatal]
  - Condition aggravated [Fatal]
  - Constipation [Fatal]
  - Dry mouth [Fatal]
  - General physical health deterioration [Fatal]
  - Hyponatraemia [Fatal]
  - Multiple organ dysfunction syndrome [Fatal]
  - Nausea [Fatal]
  - Sepsis [Fatal]
  - Somnolence [Fatal]
  - Stress [Fatal]
  - Ventricular fibrillation [Fatal]
  - Vomiting [Fatal]
  - Incorrect route of product administration [Fatal]
